FAERS Safety Report 11588374 (Version 2)
Quarter: 2015Q4

REPORT INFORMATION
  Report Type: Report from Study
  Country: CA (occurrence: CA)
  Receive Date: 20151002
  Receipt Date: 20151110
  Transmission Date: 20160304
  Serious: Yes (Other)
  Sender: FDA-Public Use
  Company Number: CA-THROMBOGENICS NV-CLI-2015-2024

PATIENT
  Age: 62 Year
  Sex: Female

DRUGS (1)
  1. JETREA [Suspect]
     Active Substance: OCRIPLASMIN
     Indication: VITREOUS ADHESIONS
     Dosage: 0.125 MG, ONE TIME DOSE
     Route: 031
     Dates: start: 20150908, end: 20150908

REACTIONS (6)
  - Night blindness [Unknown]
  - Visual field defect [Unknown]
  - Miosis [Unknown]
  - Visual acuity reduced transiently [Recovered/Resolved]
  - Dysmetropsia [Unknown]
  - Photopsia [Unknown]

NARRATIVE: CASE EVENT DATE: 20150908
